FAERS Safety Report 21733266 (Version 1)
Quarter: 2022Q4

REPORT INFORMATION
  Report Type: Report from Study
  Country: US (occurrence: US)
  Receive Date: 20221215
  Receipt Date: 20221215
  Transmission Date: 20230113
  Serious: Yes (Death, Other)
  Sender: FDA-Public Use
  Company Number: US-TAKEDA-2022TUS002433

PATIENT
  Sex: Male

DRUGS (8)
  1. TEDUGLUTIDE [Suspect]
     Active Substance: TEDUGLUTIDE
     Indication: Product used for unknown indication
     Dosage: 0.160 MILLILITER, QD
     Route: 058
     Dates: start: 20181108
  2. TEDUGLUTIDE [Suspect]
     Active Substance: TEDUGLUTIDE
     Indication: Product used for unknown indication
     Dosage: 0.160 MILLILITER, QD
     Route: 058
     Dates: start: 20181108
  3. TEDUGLUTIDE [Suspect]
     Active Substance: TEDUGLUTIDE
     Indication: Product used for unknown indication
     Dosage: 0.160 MILLILITER, QD
     Route: 058
     Dates: start: 20181108
  4. TEDUGLUTIDE [Suspect]
     Active Substance: TEDUGLUTIDE
     Indication: Product used for unknown indication
     Dosage: 0.160 MILLILITER, QD
     Route: 058
     Dates: start: 20181108
  5. TEDUGLUTIDE [Suspect]
     Active Substance: TEDUGLUTIDE
     Dosage: UNK UNK, QD
     Route: 058
     Dates: start: 20181108
  6. TEDUGLUTIDE [Suspect]
     Active Substance: TEDUGLUTIDE
     Dosage: UNK UNK, QD
     Route: 058
     Dates: start: 20181108
  7. TEDUGLUTIDE [Suspect]
     Active Substance: TEDUGLUTIDE
     Dosage: UNK UNK, QD
     Route: 058
     Dates: start: 20181108
  8. TEDUGLUTIDE [Suspect]
     Active Substance: TEDUGLUTIDE
     Dosage: UNK UNK, QD
     Route: 058
     Dates: start: 20181108

REACTIONS (2)
  - Death [Fatal]
  - Wrong technique in product usage process [Unknown]
